FAERS Safety Report 11599113 (Version 1)
Quarter: 2015Q4

REPORT INFORMATION
  Report Type: Spontaneous
  Country: CN (occurrence: CN)
  Receive Date: 20151006
  Receipt Date: 20151006
  Transmission Date: 20160304
  Serious: Yes (Other)
  Sender: FDA-Public Use
  Company Number: CN-BAYER-2015-431775

PATIENT
  Age: 58 Year
  Sex: Female

DRUGS (1)
  1. BAYASPIRIN [Suspect]
     Active Substance: ASPIRIN
     Dosage: UNK
     Route: 048
     Dates: start: 2014

REACTIONS (3)
  - Thrombosis [None]
  - Blood viscosity increased [None]
  - Headache [None]

NARRATIVE: CASE EVENT DATE: 20150925
